FAERS Safety Report 4667132-4 (Version None)
Quarter: 2005Q2

REPORT INFORMATION
  Report Type: 
  Country: None (occurrence: None)
  Receive Date: 20050520
  Receipt Date: 20030626
  Transmission Date: 20051028
  Serious: Yes (Other)
  Sender: FDA-Public Use
  Company Number: PHEH2003US05607

PATIENT
  Age: 76 Year
  Sex: Male
  Weight: 107 kg

DRUGS (7)
  1. ZOMETA [Suspect]
     Indication: MULTIPLE MYELOMA
     Dosage: 4 MG ONE TIME PER MONTH
     Route: 042
     Dates: start: 20020327, end: 20030407
  2. CHEMOTHERAPEUTICS,OTHER [Concomitant]
  3. THALIDOMIDE [Concomitant]
     Dosage: 100 MG, UNK
     Route: 048
  4. CARDIAZEM [Concomitant]
     Indication: HYPERTENSION
  5. HYTRIN [Concomitant]
     Indication: HYPERTENSION
  6. DURAGESIC-100 [Concomitant]
     Indication: PAIN
     Dosage: 75 MG PRN
     Route: 062
  7. VIOXX [Concomitant]
     Indication: PAIN
     Dosage: 25 MG, QHS

REACTIONS (6)
  - ASEPTIC NECROSIS BONE [None]
  - BONE DISORDER [None]
  - INFECTION [None]
  - PAIN IN JAW [None]
  - SEQUESTRECTOMY [None]
  - ULCER [None]
